FAERS Safety Report 13981359 (Version 1)
Quarter: 2017Q3

REPORT INFORMATION
  Report Type: Spontaneous
  Country: US (occurrence: US)
  Receive Date: 20170918
  Receipt Date: 20170918
  Transmission Date: 20171128
  Serious: No
  Sender: FDA-Public Use
  Company Number: US-PFIZER INC-2017399205

PATIENT
  Sex: Female

DRUGS (2)
  1. TRAMADOL. [Suspect]
     Active Substance: TRAMADOL
  2. LYRICA [Suspect]
     Active Substance: PREGABALIN

REACTIONS (7)
  - Feeling abnormal [Unknown]
  - Dysstasia [Unknown]
  - Pain [Unknown]
  - Intentional product misuse [Unknown]
  - Dyspnoea [Unknown]
  - Bedridden [Unknown]
  - Influenza like illness [Unknown]
